FAERS Safety Report 23291574 (Version 1)
Quarter: 2023Q4

REPORT INFORMATION
  Report Type: Spontaneous
  Country: CN (occurrence: CN)
  Receive Date: 20231213
  Receipt Date: 20231213
  Transmission Date: 20240109
  Serious: Yes (Hospitalization, Other)
  Sender: FDA-Public Use
  Company Number: CN-ORGANON-O2312CHN001153

PATIENT
  Age: 37 Year
  Sex: Female
  Weight: 53.6 kg

DRUGS (10)
  1. FOLLITROPIN BETA [Suspect]
     Active Substance: FOLLITROPIN BETA
     Indication: Ovulation induction
     Dosage: 150 IU, QD, SUBCUTANEOUS
     Route: 058
     Dates: start: 20231102, end: 20231109
  2. FOLLITROPIN BETA [Suspect]
     Active Substance: FOLLITROPIN BETA
  3. UROFOLLITROPIN [Suspect]
     Active Substance: UROFOLLITROPIN
     Indication: Ovulation induction
     Dosage: 150 IU, QD, INTRAMUSCULAR
     Route: 030
     Dates: start: 20231111, end: 20231111
  4. CHORIONIC GONADOTROPHIN [Suspect]
     Active Substance: CHORIOGONADOTROPIN ALFA
     Indication: Ovulation induction
     Dosage: 10000 IU, QD, INTRAMUSCULAR
     Route: 030
     Dates: start: 20231112, end: 20231112
  5. GONAL-F [Suspect]
     Active Substance: FOLLITROPIN
     Indication: Ovulation induction
     Dosage: 150 IU, QD, SUBCUTANEOUS
     Route: 058
     Dates: start: 20231110, end: 20231110
  6. LUVERIS [Suspect]
     Active Substance: LUTROPIN ALFA
     Indication: Ovulation induction
     Dosage: 75 IU, QD, SUBCUTANEOUS
     Route: 058
     Dates: start: 20231110, end: 20231110
  7. LUVERIS [Suspect]
     Active Substance: LUTROPIN ALFA
     Dosage: 75 IU, QD, SUBCUTANEOUS
     Route: 058
     Dates: start: 20231112, end: 20231112
  8. SODIUM CHLORIDE [Concomitant]
     Active Substance: SODIUM CHLORIDE
     Dosage: 2 ML, QD, INTRAMUSCULAR
     Route: 030
     Dates: start: 20231111, end: 20231111
  9. SODIUM CHLORIDE [Concomitant]
     Active Substance: SODIUM CHLORIDE
     Dosage: 2 ML, QD, INTRAMUSCULA
     Route: 030
     Dates: start: 20231112, end: 20231112
  10. STERILE WATER FOR INJECTION [Concomitant]
     Active Substance: WATER
     Dosage: 1 ML, QD, SUBCUTANEOUS
     Route: 058
     Dates: start: 20231110, end: 20231110

REACTIONS (4)
  - Ovarian hyperstimulation syndrome [Recovering/Resolving]
  - Abdominal distension [Recovering/Resolving]
  - Abdominal pain [Recovering/Resolving]
  - Dyspnoea [Recovering/Resolving]

NARRATIVE: CASE EVENT DATE: 20231120
